FAERS Safety Report 8888510 (Version 2)
Quarter: 2013Q1

REPORT INFORMATION
  Report Type: Spontaneous
  Country: CH (occurrence: CH)
  Receive Date: 20121106
  Receipt Date: 20130213
  Transmission Date: 20140127
  Serious: Yes (Other)
  Sender: FDA-Public Use
  Company Number: CH-B.I. PHARMACEUTICALS,INC./RIDGEFIELD-2012-AP-00964SI

PATIENT
  Age: 70 None
  Sex: Female
  Weight: 75 kg

DRUGS (2)
  1. PRADAXA [Suspect]
     Indication: ATRIAL FIBRILLATION
     Dosage: 300 MG
     Route: 048
     Dates: start: 20120713, end: 20120930
  2. METOPROLOL [Concomitant]
     Dosage: 50 MG
     Route: 048

REACTIONS (10)
  - Gastric ulcer [Recovered/Resolved]
  - Abdominal pain upper [Recovered/Resolved]
  - Dyspepsia [Recovered/Resolved]
  - Nausea [Recovered/Resolved]
  - Flatulence [Recovered/Resolved]
  - Oesophageal ulcer [Not Recovered/Not Resolved]
  - Gastrooesophageal sphincter insufficiency [Unknown]
  - Gastritis [Unknown]
  - Gastric mucosa erythema [Unknown]
  - Abdominal distension [Unknown]
